FAERS Safety Report 14494750 (Version 1)
Quarter: 2018Q1

REPORT INFORMATION
  Report Type: Spontaneous
  Country: CA (occurrence: CA)
  Receive Date: 20180206
  Receipt Date: 20180206
  Transmission Date: 20180509
  Serious: Yes (Disabling)
  Sender: FDA-Public Use
  Company Number: CA-PFIZER INC-2018047442

PATIENT
  Age: 53 Year
  Sex: Female
  Weight: 57.6 kg

DRUGS (1)
  1. PRISTIQ EXTENDED-RELEASE [Suspect]
     Active Substance: DESVENLAFAXINE SUCCINATE
     Indication: DEPRESSION
     Dosage: 50 MG, 1X/DAY
     Route: 048

REACTIONS (8)
  - Agitation [Recovered/Resolved]
  - Insomnia [Recovered/Resolved]
  - Feeling hot [Recovered/Resolved]
  - Social fear [Recovered/Resolved]
  - Decreased eye contact [Recovered/Resolved]
  - Paranoia [Recovered/Resolved]
  - Impaired work ability [Recovering/Resolving]
  - Nausea [Recovered/Resolved]
